FAERS Safety Report 6521953-1 (Version None)
Quarter: 2009Q4

REPORT INFORMATION
  Report Type: 
  Country: None (occurrence: None)
  Receive Date: 20091230
  Receipt Date: 20091217
  Transmission Date: 20100525
  Serious: Yes (Other)
  Sender: FDA-Public Use
  Company Number: BR-PFIZER INC-2009304919

PATIENT
  Sex: Male
  Weight: 38 kg

DRUGS (7)
  1. ANTILYMPHOCYTE IMMUNOGLOBULINS [Suspect]
     Indication: IMMUNOSUPPRESSANT DRUG THERAPY
     Dosage: 1500 MG, 1X/DAY
     Route: 042
     Dates: start: 20091128, end: 20091201
  2. CEFTRIAXONE [Concomitant]
     Dosage: 1800 MG, 2X/DAY
     Route: 042
  3. SANDIMMUNE [Concomitant]
     Dosage: 120 MG, 2X/DAY
     Route: 042
  4. HYDROCORTISONE SODIUM SUCCINATE [Concomitant]
     Dosage: 400 MG, 1X/DAY
     Route: 042
  5. LOSEC MUPS [Concomitant]
     Dosage: 20 MG, 1X/DAY
     Route: 048
  6. OXACILLIN [Concomitant]
     Dosage: 7200 MG, 1X/DAY
     Route: 042
  7. ZOFRAN [Concomitant]
     Dosage: 6 MG, 3X/DAY
     Route: 042

REACTIONS (2)
  - PAINFUL RESPIRATION [None]
  - XERODERMA [None]
